FAERS Safety Report 21448877 (Version 1)
Quarter: 2022Q4

REPORT INFORMATION
  Report Type: Spontaneous
  Country: DE (occurrence: DE)
  Receive Date: 20221013
  Receipt Date: 20221013
  Transmission Date: 20230113
  Serious: Yes (Death, Hospitalization, Other)
  Sender: FDA-Public Use
  Company Number: DE-BAXTER-2022BAX020543

PATIENT
  Sex: Male

DRUGS (3)
  1. EXTRANEAL [Suspect]
     Active Substance: CALCIUM CHLORIDE\ICODEXTRIN\MAGNESIUM CHLORIDE\SODIUM CHLORIDE\SODIUM LACTATE
     Indication: Peritoneal dialysis
     Dosage: UNK
     Route: 033
     Dates: start: 2021
  2. CALCIUM CHLORIDE\DEXTROSE\MAGNESIUM CHLORIDE\SODIUM CHLORIDE [Suspect]
     Active Substance: CALCIUM CHLORIDE\DEXTROSE\MAGNESIUM CHLORIDE\SODIUM CHLORIDE
     Indication: Peritoneal dialysis
     Dosage: UNK
     Route: 033
     Dates: start: 20191104
  3. TOCILIZUMAB [Concomitant]
     Active Substance: TOCILIZUMAB
     Indication: Rheumatoid arthritis
     Route: 058

REACTIONS (14)
  - Sepsis [Fatal]
  - Circulatory collapse [Fatal]
  - Flank pain [Unknown]
  - Urosepsis [Unknown]
  - Abdominal sepsis [Unknown]
  - Gallbladder oedema [Unknown]
  - Septic shock [Unknown]
  - Acute abdomen [Unknown]
  - Gastrointestinal ischaemia [Unknown]
  - Streptococcus test positive [Unknown]
  - Disease progression [Unknown]
  - Gastrointestinal wall thickening [Unknown]
  - Cardiovascular disorder [Unknown]
  - Chills [Unknown]
